FAERS Safety Report 8511784-5 (Version None)
Quarter: 2012Q3

REPORT INFORMATION
  Report Type: 
  Country: None (occurrence: None)
  Receive Date: 20120711
  Receipt Date: 20120711
  Transmission Date: 20120928
  Serious: Yes (Other)
  Sender: FDA-Public Use
  Company Number: None

PATIENT

DRUGS (3)
  1. TRILEPTAL [Suspect]
  2. VENLAFAXINE [Suspect]
  3. RISPERIDONE [Suspect]

REACTIONS (10)
  - COUGH [None]
  - AMENORRHOEA [None]
  - NAUSEA [None]
  - DIARRHOEA [None]
  - WEIGHT INCREASED [None]
  - VOMITING [None]
  - HEADACHE [None]
  - DIZZINESS [None]
  - PAROSMIA [None]
  - URINARY TRACT INFECTION [None]
